FAERS Safety Report 8116448-8 (Version None)
Quarter: 2012Q1

REPORT INFORMATION
  Report Type: 
  Country: None (occurrence: None)
  Receive Date: 20120120
  Receipt Date: 20120109
  Transmission Date: 20120608
  Serious: Yes (Other)
  Sender: FDA-Public Use
  Company Number: 2012030780

PATIENT
  Age: 64 Year
  Sex: Female
  Weight: 74.3899 kg

DRUGS (20)
  1. HYDROXYCHLOROQUINE SULFATE [Concomitant]
  2. CELEX (CEFALEXIN MONOHYDRATE) [Concomitant]
  3. OBETROL [Concomitant]
  4. VICODIN [Concomitant]
  5. SKELAXIN [Concomitant]
  6. HIZENTRA [Suspect]
     Indication: IMMUNODEFICIENCY COMMON VARIABLE
     Dosage: (8 G 1X/WEEK, 40ML ON 2 SITES OVER ONE TO TWO HOURS SUBCUTANEOUS)
     Route: 058
     Dates: start: 20111223, end: 20111223
  7. HIZENTRA [Suspect]
     Indication: IMMUNODEFICIENCY COMMON VARIABLE
     Dosage: (8 G 1X/WEEK, 40ML ON 2 SITES OVER ONE TO TWO HOURS SUBCUTANEOUS)
     Route: 058
     Dates: start: 20111230, end: 20111230
  8. SYMBICORT (BUDESONIDE W/FORMOTEROL) [Concomitant]
  9. MULTIVITAMIN (MULTIVITAMIN /00831701/) [Concomitant]
  10. AMERGE [Concomitant]
  11. COENZYME Q10 [Concomitant]
  12. HYDROCHLOROTHIAZIDE [Concomitant]
  13. TOPROL-XL [Concomitant]
  14. BONIVA [Concomitant]
  15. NEXIUM [Concomitant]
  16. FISH OIL (FISH OIL) [Concomitant]
  17. XANAX [Concomitant]
  18. SIMVASTATIN [Concomitant]
  19. WELLBUTRIN SR [Concomitant]
  20. PROAIR HFA (SALBUTAMOL SULFATE) [Concomitant]

REACTIONS (2)
  - ANXIETY [None]
  - ANGIOEDEMA [None]
